FAERS Safety Report 13036171 (Version 1)
Quarter: 2016Q4

REPORT INFORMATION
  Report Type: Spontaneous
  Country: GB (occurrence: GB)
  Receive Date: 20161216
  Receipt Date: 20161216
  Transmission Date: 20170207
  Serious: Yes (Life-Threatening, Other)
  Sender: FDA-Public Use
  Company Number: GB-CELLTRION INC.-2016GB011516

PATIENT

DRUGS (3)
  1. HUMIRA [Suspect]
     Active Substance: ADALIMUMAB
     Indication: CROHN^S DISEASE
     Dosage: PATIENT ALERT CARD NOT FILLED OUT.
     Route: 051
     Dates: start: 20160622, end: 20160630
  2. PREDNISONE. [Concomitant]
     Active Substance: PREDNISONE
     Dosage: UNK
  3. INFLECTRA [Suspect]
     Active Substance: INFLIXIMAB-DYYB
     Indication: CROHN^S DISEASE
     Dosage: PATIENT ALERT CARD NOT FILLED OUT.
     Route: 041
     Dates: start: 20160609, end: 20160609

REACTIONS (12)
  - Muscle spasms [Unknown]
  - Respiratory arrest [Recovered/Resolved]
  - Swollen tongue [Unknown]
  - Thrombophlebitis [Unknown]
  - Headache [Not Recovered/Not Resolved]
  - Contusion [Not Recovered/Not Resolved]
  - Mental impairment [Not Recovered/Not Resolved]
  - Memory impairment [Not Recovered/Not Resolved]
  - Anaphylactic shock [Recovered/Resolved]
  - Facial spasm [Not Recovered/Not Resolved]
  - Skin discolouration [Unknown]
  - Eye contusion [Unknown]

NARRATIVE: CASE EVENT DATE: 20160609
